FAERS Safety Report 10722785 (Version 6)
Quarter: 2015Q1

REPORT INFORMATION
  Report Type: Spontaneous
  Country: GB (occurrence: GB)
  Receive Date: 20150120
  Receipt Date: 20150331
  Transmission Date: 20150721
  Serious: Yes (Other)
  Sender: FDA-Public Use
  Company Number: GB-BEH-2015047849

PATIENT
  Age: 7 Year
  Sex: Male
  Weight: 23 kg

DRUGS (11)
  1. METHOTREXATE [Concomitant]
     Active Substance: METHOTREXATE
     Dosage: START DATE: AUG 2014
     Route: 048
  2. HIZENTRA [Suspect]
     Active Substance: HUMAN IMMUNOGLOBULIN G
     Indication: SECONDARY IMMUNODEFICIENCY
     Dosage: 4 GRAMS 1/WEEK; 20 ML OVER 2 HOURS
     Route: 058
     Dates: start: 20141224, end: 20141224
  3. VITAMIN A [Concomitant]
     Active Substance: VITAMIN A
     Dosage: START DATE: 2013; 2 DROPS PER DAY; 10,000 UNITS
     Route: 048
  4. MYCOPHENOLATE MOFETIL. [Concomitant]
     Active Substance: MYCOPHENOLATE MOFETIL
     Dosage: START DATE: 2013
     Route: 048
  5. HIZENTRA [Suspect]
     Active Substance: HUMAN IMMUNOGLOBULIN G
     Dates: start: 20150113
  6. HIZENTRA [Suspect]
     Active Substance: HUMAN IMMUNOGLOBULIN G
     Dates: start: 20150120
  7. FOLIC ACID. [Concomitant]
     Active Substance: FOLIC ACID
     Dosage: START DATE: 2013
     Route: 048
  8. CREON [Concomitant]
     Active Substance: PANCRELIPASE AMYLASE\PANCRELIPASE LIPASE\PANCRELIPASE PROTEASE
     Dosage: START DATE: 2013; 2 CAPSULES WITH FOOD EVERY DAY; 10,000 UNITS/CAPSULE
     Route: 048
  9. VITAMIN D [Concomitant]
     Active Substance: CHOLECALCIFEROL
     Dosage: START DATE: 2013; 1 DROP PER DAY; 400 UNITS
  10. HIZENTRA [Suspect]
     Active Substance: HUMAN IMMUNOGLOBULIN G
     Dates: start: 20141229
  11. HIZENTRA [Suspect]
     Active Substance: HUMAN IMMUNOGLOBULIN G
     Dates: start: 20150105

REACTIONS (3)
  - Staphylococcal infection [Not Recovered/Not Resolved]
  - Suspected transmission of an infectious agent via product [Not Recovered/Not Resolved]
  - Infusion site abscess [Not Recovered/Not Resolved]

NARRATIVE: CASE EVENT DATE: 20141224
